FAERS Safety Report 5068722-X (Version None)
Quarter: 2006Q3

REPORT INFORMATION
  Report Type: 
  Country: None (occurrence: None)
  Receive Date: 20060802
  Receipt Date: 20060228
  Transmission Date: 20061208
  Serious: No
  Sender: FDA-Public Use
  Company Number: US-BRISTOL-MYERS SQUIBB COMPANY-13298880

PATIENT
  Age: 65 Year
  Sex: Female
  Weight: 64 kg

DRUGS (18)
  1. WARFARIN SODIUM [Suspect]
     Indication: ATRIAL FIBRILLATION
     Dosage: STARTED 2.5 WEEKS AGO AT 2 MG/D, INCREASED TO 4 MG/D
     Dates: start: 20060201
  2. CALCIUM CITRATE [Concomitant]
  3. CHONDROITIN [Concomitant]
  4. GLUCOSAMINE SULFATE [Concomitant]
  5. LISINOPRIL [Concomitant]
  6. MURO 128 [Concomitant]
     Route: 047
  7. PANMIST JR [Concomitant]
  8. PREMARIN PLUS [Concomitant]
  9. REFRESH TEARS [Concomitant]
  10. SYSTANE [Concomitant]
  11. VITAMIN B COMPLEX CAP [Concomitant]
  12. VITAMIN E [Concomitant]
  13. ASCORBIC ACID [Concomitant]
  14. METHSUXIMIDE [Concomitant]
  15. MYOCALM PM [Concomitant]
  16. THERATEARS [Concomitant]
  17. SAVISION [Concomitant]
  18. SOY LECITHIN [Concomitant]

REACTIONS (1)
  - PROTHROMBIN LEVEL ABNORMAL [None]
